FAERS Safety Report 16663068 (Version 1)
Quarter: 2019Q3

REPORT INFORMATION
  Report Type: Report from Study
  Country: US (occurrence: US)
  Receive Date: 20190802
  Receipt Date: 20190802
  Transmission Date: 20191004
  Serious: No
  Sender: FDA-Public Use
  Company Number: US-EXELIXIS-CABO-19020260

PATIENT
  Age: 45 Year
  Sex: Female

DRUGS (3)
  1. CABOMETYX [Suspect]
     Active Substance: CABOZANTINIB S-MALATE
     Dosage: 40 MG, QD (Q AM)
     Dates: start: 201905
  2. CABOMETYX [Suspect]
     Active Substance: CABOZANTINIB S-MALATE
     Indication: RENAL CANCER
     Dosage: 60 MG, QD (WITHOUT FOOD IN THE MORNING)
     Dates: start: 20190328, end: 20190429
  3. CABOMETYX [Suspect]
     Active Substance: CABOZANTINIB S-MALATE
     Dosage: 60 MG, QD (WITHOUT FOOD IN THE MORNING)
     Dates: start: 20190504

REACTIONS (13)
  - Abdominal pain upper [Unknown]
  - Anal haemorrhage [Recovered/Resolved]
  - Hypertension [Not Recovered/Not Resolved]
  - Vision blurred [Unknown]
  - Diarrhoea [Recovered/Resolved]
  - Vomiting [Unknown]
  - Lip dry [Unknown]
  - Nausea [Unknown]
  - Solar lentigo [Unknown]
  - Cough [Unknown]
  - Fatigue [Recovering/Resolving]
  - Headache [Unknown]
  - Asthenia [Unknown]

NARRATIVE: CASE EVENT DATE: 20190504
